FAERS Safety Report 4304390-X (Version None)
Quarter: 2004Q1

REPORT INFORMATION
  Report Type: 
  Country: None (occurrence: None)
  Receive Date: 20040224
  Receipt Date: 20040212
  Transmission Date: 20041129
  Serious: Yes (Hospitalization)
  Sender: FDA-Public Use
  Company Number: 04P-163-0250035-00

PATIENT
  Age: 47 Year
  Sex: Female
  Weight: 93.8946 kg

DRUGS (10)
  1. HUMIRA [Suspect]
     Indication: RHEUMATOID ARTHRITIS
     Dosage: 40 MG, 1 IN 2 WK, SUBCUTANEOUS
     Route: 058
     Dates: start: 20040119
  2. BISOPROLOL [Concomitant]
  3. SALBUTAMOL [Concomitant]
  4. SERETIDE MITE [Concomitant]
  5. AQUA-TAB [Concomitant]
  6. MONTELUKAST SODIUM [Concomitant]
  7. BUPROPION HYDROCHLORIDE [Concomitant]
  8. FOLIC ACID [Concomitant]
  9. FLUTICASONE PROPIONATE [Concomitant]
  10. ANTI-HISTAMINE TAB [Concomitant]

REACTIONS (4)
  - ABDOMINAL PAIN [None]
  - INFECTIOUS MONONUCLEOSIS [None]
  - INJECTION SITE ERYTHEMA [None]
  - INJECTION SITE PAIN [None]
